FAERS Safety Report 7755763 (Version 3)
Quarter: 2019Q2

REPORT INFORMATION
  Report Type: Spontaneous
  Country: PT (occurrence: PT)
  Receive Date: 20110111
  Receipt Date: 20190528
  Transmission Date: 20190711
  Serious: Yes (Hospitalization, Congenital Anomaly)
  Sender: FDA-Public Use
  Company Number: PHHY2010PT89861

PATIENT
  Sex: Female
  Weight: 2.33 kg

DRUGS (2)
  1. LISINOPRIL. [Suspect]
     Active Substance: LISINOPRIL
     Indication: FOETAL EXPOSURE DURING PREGNANCY
     Dosage: 10 MG, UNK
     Route: 064
  2. METHYLDOPA. [Suspect]
     Active Substance: METHYLDOPA
     Indication: FOETAL EXPOSURE DURING PREGNANCY
     Dosage: 50 MG, UNK
     Route: 064

REACTIONS (29)
  - Congenital anomaly [Unknown]
  - Cranial sutures widening [Recovered/Resolved]
  - Foetal exposure during pregnancy [Unknown]
  - Weight decrease neonatal [Recovered/Resolved]
  - Enuresis [Not Recovered/Not Resolved]
  - Neonatal hypotension [Recovered/Resolved]
  - Renal failure [Unknown]
  - Anuria [Unknown]
  - Polyuria [Unknown]
  - Premature baby [Unknown]
  - Infection [Unknown]
  - Anaemia [Recovered/Resolved]
  - Cerebral atrophy [Unknown]
  - Angiotensin converting enzyme inhibitor foetopathy [Unknown]
  - Blood pressure decreased [Unknown]
  - Microcephaly [Recovered/Resolved]
  - Blood antidiuretic hormone decreased [Not Recovered/Not Resolved]
  - Renal failure neonatal [Recovered/Resolved with Sequelae]
  - Hypernatraemia [Unknown]
  - Delayed fontanelle closure [Recovered/Resolved]
  - Dyspnoea [Recovered/Resolved]
  - Dysmorphism [Unknown]
  - Anomaly of external ear congenital [Unknown]
  - Atelectasis neonatal [Recovered/Resolved]
  - Polydipsia [Unknown]
  - Weight increased [Unknown]
  - Congenital nose malformation [Unknown]
  - Hypertonia neonatal [Recovered/Resolved]
  - Retrognathia [Unknown]
